FAERS Safety Report 5163727-2 (Version None)
Quarter: 2006Q4

REPORT INFORMATION
  Report Type: 
  Country: None (occurrence: None)
  Receive Date: 20061204
  Receipt Date: 20061129
  Transmission Date: 20070319
  Serious: Yes (Death)
  Sender: FDA-Public Use
  Company Number: JP-JPN-A200605094

PATIENT
  Age: 61 Year
  Sex: Male

DRUGS (9)
  1. ZANTAC [Suspect]
     Indication: GASTRIC ULCER
     Dosage: 75MG TWICE PER DAY
     Route: 048
     Dates: start: 20030106
  2. DEPAS [Suspect]
     Indication: DRUG USE FOR UNKNOWN INDICATION
     Dosage: .5MG THREE TIMES PER DAY
     Route: 048
     Dates: start: 20010804
  3. DEPAS [Suspect]
     Dosage: .5MG PER DAY
     Route: 048
     Dates: start: 20011026
  4. MEVALOTIN [Concomitant]
     Dosage: 10MG PER DAY
     Route: 048
     Dates: start: 20060309
  5. NORVASC [Concomitant]
     Indication: HYPERTENSION
     Dosage: 5MG TWICE PER DAY
     Route: 048
     Dates: start: 20020119
  6. OLMETEC [Concomitant]
     Indication: HYPERTENSION
     Dosage: 20MG TWICE PER DAY
     Route: 048
     Dates: start: 20040807
  7. OLMETEC [Concomitant]
     Dates: start: 20041030
  8. MINOPEN [Concomitant]
     Route: 065
  9. MEROPEN [Concomitant]
     Route: 042

REACTIONS (2)
  - DEATH [None]
  - INTERSTITIAL LUNG DISEASE [None]
